FAERS Safety Report 9393026 (Version 3)
Quarter: 2013Q3

REPORT INFORMATION
  Report Type: Spontaneous
  Country: US (occurrence: US)
  Receive Date: 20130710
  Receipt Date: 20130905
  Transmission Date: 20140515
  Serious: Yes (Other)
  Sender: FDA-Public Use
  Company Number: US-PFIZER INC-2013202880

PATIENT
  Age: 39 Year
  Sex: Female
  Weight: 59 kg

DRUGS (6)
  1. CHANTIX [Suspect]
     Indication: SMOKING CESSATION THERAPY
     Dosage: 1 MG,  DAILY
     Route: 048
     Dates: start: 20110922, end: 20120209
  2. LAMICTAL [Concomitant]
     Dosage: 150 MG, 2X/DAY
     Dates: start: 2010
  3. ABILIFY [Concomitant]
     Dosage: UNK
  4. GABAPENTIN [Concomitant]
     Indication: BIPOLAR II DISORDER
     Dosage: UNK
     Dates: start: 20110505
  5. CONCERTA [Concomitant]
     Indication: ATTENTION DEFICIT/HYPERACTIVITY DISORDER
     Dosage: 54 MG, 1X/DAY (9 AM)
     Dates: start: 20110524, end: 20120604
  6. METHYLPHENIDATE ER [Concomitant]
     Indication: ATTENTION DEFICIT/HYPERACTIVITY DISORDER
     Dosage: 40 MG AM+20MG PM
     Dates: start: 20110524, end: 20120604

REACTIONS (7)
  - Bipolar I disorder [Recovered/Resolved]
  - Ageusia [Not Recovered/Not Resolved]
  - Anosmia [Not Recovered/Not Resolved]
  - Nausea [Recovered/Resolved]
  - Vomiting [Recovered/Resolved]
  - Sinus congestion [Unknown]
  - Nicotine dependence [Unknown]
